FAERS Safety Report 8914621 (Version 2)
Quarter: 2013Q1

REPORT INFORMATION
  Report Type: Report from Study
  Country: JP (occurrence: JP)
  Receive Date: 20121119
  Receipt Date: 20130104
  Transmission Date: 20140127
  Serious: Yes (Hospitalization)
  Sender: FDA-Public Use
  Company Number: JP-ROCHE-1155544

PATIENT
  Age: 58 Year
  Sex: Female

DRUGS (19)
  1. TOCILIZUMAB [Suspect]
     Indication: RHEUMATOID ARTHRITIS
     Route: 041
     Dates: start: 20080627, end: 20080929
  2. TOCILIZUMAB [Suspect]
     Indication: RHEUMATOID ARTHRITIS
     Route: 041
     Dates: start: 20081219, end: 20100901
  3. TOCILIZUMAB [Suspect]
     Indication: RHEUMATOID ARTHRITIS
     Route: 041
     Dates: start: 20101027, end: 20110223
  4. PREDNISOLONE [Concomitant]
     Indication: RHEUMATOID ARTHRITIS
     Route: 048
  5. PREDNISOLONE [Concomitant]
     Indication: RHEUMATOID ARTHRITIS
     Dosage: UNCERTAIN DOSAGE (LESS THAN 5MG)
     Route: 048
  6. DECADRON [Concomitant]
     Indication: RHEUMATOID ARTHRITIS
     Route: 014
     Dates: start: 20080421, end: 20080421
  7. DECADRON [Concomitant]
     Indication: RHEUMATOID ARTHRITIS
     Route: 014
     Dates: start: 20080714, end: 20080714
  8. LOXONIN [Concomitant]
     Indication: RHEUMATOID ARTHRITIS
     Route: 048
  9. SELBEX [Concomitant]
     Indication: PROPHYLAXIS
     Route: 048
  10. LASIX [Concomitant]
     Indication: HYPERTENSION
     Route: 048
  11. BLOPRESS [Concomitant]
     Indication: HYPERTENSION
     Route: 048
  12. NORVASC [Concomitant]
     Indication: HYPERTENSION
     Route: 048
  13. RINLAXER [Concomitant]
     Indication: RHEUMATOID ARTHRITIS
     Route: 048
  14. PURSENNID [Concomitant]
     Indication: CONSTIPATION
     Route: 048
  15. DEPAS [Concomitant]
     Indication: RHEUMATOID ARTHRITIS
     Route: 048
  16. MEDET [Concomitant]
     Indication: DIABETES MELLITUS
     Route: 048
  17. ACTOS [Concomitant]
     Indication: DIABETES MELLITUS
     Route: 048
  18. AMARYL [Concomitant]
     Indication: DIABETES MELLITUS
     Route: 048
  19. MEVALOTIN [Concomitant]
     Indication: HYPERLIPIDAEMIA
     Route: 048
     Dates: start: 20080909

REACTIONS (1)
  - Pleurisy [Recovered/Resolved]
